FAERS Safety Report 5621128-4 (Version None)
Quarter: 2008Q1

REPORT INFORMATION
  Report Type: 
  Country: None (occurrence: None)
  Receive Date: 20080114
  Receipt Date: 20070129
  Transmission Date: 20080703
  Serious: Yes (Other)
  Sender: FDA-Public Use
  Company Number: A03200701142

PATIENT
  Age: 86 Year
  Sex: Female

DRUGS (5)
  1. PLAVIX [Suspect]
     Indication: CEREBROVASCULAR ACCIDENT
     Dosage: 75 MG QD - ORAL
     Route: 048
     Dates: start: 20061220
  2. IBUPROFEN TABLETS [Suspect]
     Indication: ARTHRALGIA
     Dosage: ORAL
     Route: 048
     Dates: start: 20070101, end: 20070129
  3. DARVOCET-N [Concomitant]
  4. TRAMADOL HCL [Concomitant]
  5. EZETIMIBE [Concomitant]

REACTIONS (5)
  - BLOOD BLISTER [None]
  - BLOOD URINE PRESENT [None]
  - CAROTID ARTERY OCCLUSION [None]
  - GASTRIC HAEMORRHAGE [None]
  - HAEMATOCHEZIA [None]
